FAERS Safety Report 21615475 (Version 2)
Quarter: 2023Q1

REPORT INFORMATION
  Report Type: Spontaneous
  Country: US (occurrence: None)
  Receive Date: 20221118
  Receipt Date: 20230110
  Transmission Date: 20230417
  Serious: No
  Sender: FDA-Public Use
  Company Number: 2022A356132

PATIENT
  Sex: Female
  Weight: 48.1 kg

DRUGS (2)
  1. SYMBICORT [Suspect]
     Active Substance: BUDESONIDE\FORMOTEROL FUMARATE DIHYDRATE
     Indication: Asthma
     Dosage: DOSE UNKNOWN
     Route: 055
  2. BUDESONIDE\FORMOTEROL FUMARATE DIHYDRATE [Suspect]
     Active Substance: BUDESONIDE\FORMOTEROL FUMARATE DIHYDRATE
     Dosage: 160/4.5 MCG 2 PUFFS TWO TIMES A DAY
     Route: 055

REACTIONS (6)
  - Chest pain [Unknown]
  - Inflammation [Not Recovered/Not Resolved]
  - Feeling abnormal [Unknown]
  - Dependence [Not Recovered/Not Resolved]
  - Incorrect dose administered [Not Recovered/Not Resolved]
  - Device delivery system issue [Unknown]
